FAERS Safety Report 4985260-0 (Version None)
Quarter: 2006Q2

REPORT INFORMATION
  Report Type: 
  Country: None (occurrence: None)
  Receive Date: 20060427
  Receipt Date: 20050802
  Transmission Date: 20061013
  Serious: Yes (Hospitalization, Disabling)
  Sender: FDA-Public Use
  Company Number: NO-MERCK-0508NOR00003

PATIENT
  Age: 55 Year
  Sex: Male

DRUGS (11)
  1. VIOXX [Suspect]
     Indication: ARTHRITIS
     Route: 048
     Dates: start: 20000814, end: 20000925
  2. VIOXX [Suspect]
     Route: 048
     Dates: start: 20001001, end: 20041001
  3. VIOXX [Suspect]
     Indication: PSORIASIS
     Route: 048
     Dates: start: 20000814, end: 20000925
  4. VIOXX [Suspect]
     Route: 048
     Dates: start: 20001001, end: 20041001
  5. DILTIAZEM HYDROCHLORIDE [Concomitant]
     Route: 065
  6. DILTIAZEM HYDROCHLORIDE [Concomitant]
     Route: 065
  7. SULFASALAZINE [Concomitant]
     Route: 065
  8. INSULIN, ISOPHANE [Concomitant]
     Route: 065
  9. INSULIN, ISOPHANE [Concomitant]
     Route: 065
  10. DOXAZOSIN MESYLATE [Concomitant]
     Route: 065
  11. CLOBETASOL PROPIONATE [Concomitant]
     Route: 065

REACTIONS (6)
  - ALCOHOLISM [None]
  - BRAIN DAMAGE [None]
  - CEREBRAL INFARCTION [None]
  - GASTRIC HAEMORRHAGE [None]
  - HAEMORRHAGE [None]
  - OESOPHAGITIS [None]
